FAERS Safety Report 18047352 (Version 1)
Quarter: 2020Q3

REPORT INFORMATION
  Report Type: Spontaneous
  Country: US (occurrence: US)
  Receive Date: 20200721
  Receipt Date: 20200721
  Transmission Date: 20201103
  Serious: Yes (Other)
  Sender: FDA-Public Use
  Company Number: US-LUPIN PHARMACEUTICALS INC.-2020-03464

PATIENT
  Age: 84 Year
  Sex: Male
  Weight: 104 kg

DRUGS (2)
  1. POTASSIUM CHLORIDE ORAL SOLUTION 20 MEQ [Suspect]
     Active Substance: POTASSIUM CHLORIDE
     Indication: MINERAL SUPPLEMENTATION
     Dosage: 1 DOSAGE FORM, QD
     Route: 048
     Dates: start: 20200706
  2. POTASSIUM CHLORIDE ER TABLETS [Suspect]
     Active Substance: POTASSIUM CHLORIDE
     Indication: MINERAL SUPPLEMENTATION
     Dosage: UNK
     Route: 048

REACTIONS (6)
  - Wrong technique in product usage process [Unknown]
  - Choking [Unknown]
  - Product size issue [Unknown]
  - Product use complaint [Unknown]
  - Product taste abnormal [Unknown]
  - Herpes zoster [Not Recovered/Not Resolved]

NARRATIVE: CASE EVENT DATE: 20200706
